FAERS Safety Report 20109431 (Version 2)
Quarter: 2021Q4

REPORT INFORMATION
  Report Type: Spontaneous
  Country: CA (occurrence: CA)
  Receive Date: 20211124
  Receipt Date: 20211221
  Transmission Date: 20220303
  Serious: Yes (Other)
  Sender: FDA-Public Use
  Company Number: CA-AMERICAN REGENT INC-2021003084

PATIENT
  Age: 27 Year
  Sex: Female

DRUGS (1)
  1. VENOFER [Suspect]
     Active Substance: IRON SUCROSE
     Indication: Anaemia
     Dosage: 100 MG/5ML
     Dates: start: 2021, end: 2021

REACTIONS (4)
  - Erythema [Unknown]
  - Rash macular [Unknown]
  - Maternal exposure during pregnancy [Unknown]
  - Swelling [Unknown]

NARRATIVE: CASE EVENT DATE: 20210101
